FAERS Safety Report 6471573-2 (Version None)
Quarter: 2009Q4

REPORT INFORMATION
  Report Type: 
  Country: None (occurrence: None)
  Receive Date: 20091203
  Receipt Date: 20091125
  Transmission Date: 20100525
  Serious: Yes (Hospitalization)
  Sender: FDA-Public Use
  Company Number: GB-TEVA-216483ISR

PATIENT
  Age: 1 Year
  Sex: Female

DRUGS (1)
  1. PREDNISOLONE [Suspect]
     Indication: NEPHROTIC SYNDROME

REACTIONS (1)
  - INTRACRANIAL VENOUS SINUS THROMBOSIS [None]
